FAERS Safety Report 4633540-0 (Version None)
Quarter: 2005Q2

REPORT INFORMATION
  Report Type: 
  Country: None (occurrence: None)
  Receive Date: 20050331
  Receipt Date: 20041213
  Transmission Date: 20051028
  Serious: Yes (Hospitalization, Other)
  Sender: FDA-Public Use
  Company Number: 200416012BCC

PATIENT
  Age: 73 Year
  Sex: Male
  Weight: 77.1115 kg

DRUGS (5)
  1. ALEVE (CAPLET) [Suspect]
     Dosage: 220 MG, ONCE, ORAL;  220 MG, ONCE, ORAL
     Route: 048
     Dates: start: 20041208
  2. ALEVE (CAPLET) [Suspect]
     Dosage: 220 MG, ONCE, ORAL;  220 MG, ONCE, ORAL
     Route: 048
     Dates: start: 20041211
  3. LIPITOR [Concomitant]
  4. FLONASE [Concomitant]
  5. PRILOSEC [Concomitant]

REACTIONS (8)
  - ANAPHYLACTIC REACTION [None]
  - BLOOD PRESSURE DECREASED [None]
  - DIZZINESS [None]
  - HYPERHIDROSIS [None]
  - HYPERSENSITIVITY [None]
  - OEDEMA PERIPHERAL [None]
  - PRURITUS [None]
  - THROAT TIGHTNESS [None]
